FAERS Safety Report 24569797 (Version 3)
Quarter: 2024Q4

REPORT INFORMATION
  Report Type: Spontaneous
  Country: JP (occurrence: JP)
  Receive Date: 20241031
  Receipt Date: 20241216
  Transmission Date: 20250114
  Serious: Yes (Life-Threatening, Hospitalization, Other)
  Sender: MERCK
  Company Number: JP-MSD-2410JPN004147J

PATIENT
  Age: 68 Year
  Sex: Female
  Weight: 49 kg

DRUGS (7)
  1. CUBICIN [Suspect]
     Active Substance: DAPTOMYCIN
     Indication: Prophylaxis
     Dosage: 200 MILLIGRAM
     Route: 041
     Dates: start: 20210105, end: 20210105
  2. PROPOFOL [Concomitant]
     Active Substance: PROPOFOL
     Indication: Sedation
     Dosage: 0.8 MCG/ML
     Route: 065
     Dates: start: 20210105
  3. PROPOFOL [Concomitant]
     Active Substance: PROPOFOL
     Dosage: 1 MCG/ML
     Route: 065
  4. DEXMEDETOMIDINE HYDROCHLORIDE [Concomitant]
     Active Substance: DEXMEDETOMIDINE HYDROCHLORIDE
     Indication: Sedation
     Dosage: 0.6 MCG/KG/H
     Route: 065
     Dates: start: 20210105
  5. FENTANYL CITRATE [Concomitant]
     Active Substance: FENTANYL CITRATE
     Dosage: 25 MICROGRAM
     Route: 065
     Dates: start: 20210105
  6. LEVOBUPIVACAINE HYDROCHLORIDE [Concomitant]
     Active Substance: LEVOBUPIVACAINE HYDROCHLORIDE
     Indication: Nerve block
     Dosage: 19 MILLILITER
     Route: 065
     Dates: start: 20210105
  7. LEVOBUPIVACAINE HYDROCHLORIDE [Concomitant]
     Active Substance: LEVOBUPIVACAINE HYDROCHLORIDE
     Indication: Nerve block
     Dosage: 18 MILLILITER
     Route: 065

REACTIONS (5)
  - Circulatory collapse [Recovered/Resolved]
  - Anaphylactic reaction [Unknown]
  - Hypotension [Recovering/Resolving]
  - Dizziness [Recovered/Resolved]
  - Product use in unapproved indication [Unknown]

NARRATIVE: CASE EVENT DATE: 20210105
